FAERS Safety Report 25427763 (Version 1)
Quarter: 2025Q2

REPORT INFORMATION
  Report Type: Spontaneous
  Country: TW (occurrence: TW)
  Receive Date: 20250612
  Receipt Date: 20250612
  Transmission Date: 20250716
  Serious: Yes (Hospitalization, Other)
  Sender: NOVARTIS
  Company Number: TW-002147023-NVSC2025TW090940

PATIENT
  Age: 57 Year
  Sex: Female
  Weight: 64.1 kg

DRUGS (1)
  1. AFINITOR [Suspect]
     Active Substance: EVEROLIMUS
     Indication: Breast cancer
     Dosage: 10.0 MG, QD
     Route: 048
     Dates: start: 20240816, end: 20250516

REACTIONS (4)
  - Dyspnoea [Unknown]
  - Productive cough [Unknown]
  - Chest pain [Unknown]
  - Interstitial lung disease [Recovered/Resolved]

NARRATIVE: CASE EVENT DATE: 20250516
